FAERS Safety Report 4568229-X (Version None)
Quarter: 2005Q1

REPORT INFORMATION
  Report Type: 
  Country: None (occurrence: None)
  Receive Date: 20050202
  Receipt Date: 20050121
  Transmission Date: 20050727
  Serious: Yes (Life-Threatening)
  Sender: FDA-Public Use
  Company Number: US-SANOFI-SYNTHELABO-D01200500580

PATIENT
  Sex: Male
  Weight: 94 kg

DRUGS (16)
  1. AMBIEN [Concomitant]
     Dosage: UNK
     Route: 065
     Dates: start: 20050112, end: 20050116
  2. PERCOCET [Concomitant]
     Dosage: UNK
     Route: 065
     Dates: start: 20050111, end: 20050116
  3. TYLENOL [Concomitant]
     Dosage: UNK
     Route: 065
     Dates: start: 20050111, end: 20050118
  4. LASIX [Concomitant]
     Dosage: UNK
     Route: 065
     Dates: start: 20050115, end: 20050119
  5. VORICONAZOLE [Concomitant]
     Dosage: UNK
     Route: 065
     Dates: start: 20050115, end: 20050118
  6. ACYCLOVIR [Concomitant]
     Dosage: UNK
     Route: 065
     Dates: start: 20050112, end: 20050118
  7. VANCOMYCIN [Concomitant]
     Dosage: UNK
     Route: 065
     Dates: start: 20050111, end: 20050119
  8. FORTAZ [Concomitant]
     Dosage: UNK
     Route: 065
     Dates: start: 20050111
  9. GENTAMICIN [Concomitant]
     Dosage: UNK
     Route: 065
     Dates: start: 20050111, end: 20050111
  10. ZOSYN [Concomitant]
     Dosage: UNK
     Route: 065
     Dates: start: 20050111, end: 20050111
  11. MITOXANTRONE [Concomitant]
     Dosage: UNK
     Route: 065
  12. ALLOPURINOL [Suspect]
     Route: 048
     Dates: start: 20050115, end: 20050117
  13. CYTARABINE [Concomitant]
     Dosage: UNK
     Route: 065
  14. RASBURICASE [Suspect]
     Route: 042
     Dates: start: 20050113, end: 20050115
  15. DEMEROL [Concomitant]
     Dosage: UNK
     Route: 065
     Dates: start: 20050115, end: 20050115
  16. BENADRYL [Concomitant]
     Dosage: UNK
     Route: 065
     Dates: start: 20050115, end: 20050119

REACTIONS (14)
  - ALANINE AMINOTRANSFERASE INCREASED [None]
  - ANTI-HBS ANTIBODY [None]
  - ASPARTATE AMINOTRANSFERASE INCREASED [None]
  - BLOOD CREATINE PHOSPHOKINASE INCREASED [None]
  - BLOOD FIBRINOGEN INCREASED [None]
  - BLOOD LACTATE DEHYDROGENASE INCREASED [None]
  - CONFUSIONAL STATE [None]
  - COUGH [None]
  - DYSPNOEA [None]
  - GAMMA-GLUTAMYLTRANSFERASE INCREASED [None]
  - MUSCLE TWITCHING [None]
  - PROTHROMBIN TIME PROLONGED [None]
  - PYREXIA [None]
  - RHABDOMYOLYSIS [None]
